FAERS Safety Report 4860665-7 (Version None)
Quarter: 2005Q4

REPORT INFORMATION
  Report Type: 
  Country: None (occurrence: None)
  Receive Date: 20051216
  Receipt Date: 20051128
  Transmission Date: 20060501
  Serious: Yes (Death, Hospitalization)
  Sender: FDA-Public Use
  Company Number: US_030694991

PATIENT
  Age: 7 Year
  Sex: Female
  Weight: 23.9 kg

DRUGS (2)
  1. HUMATROPE [Suspect]
     Indication: GROWTH HORMONE DEFICIENCY
     Dosage: 1.2 MG, 6/W, SUBCUTANEOUS
     Route: 058
     Dates: start: 20020703, end: 20030416
  2. SYNTHROID [Concomitant]

REACTIONS (4)
  - MALIGNANT NEOPLASM PROGRESSION [None]
  - METASTASES TO LIVER [None]
  - METASTASES TO NECK [None]
  - NEUROBLASTOMA [None]
